FAERS Safety Report 9991575 (Version 1)
Quarter: 2014Q1

REPORT INFORMATION
  Report Type: Spontaneous
  Country: DE (occurrence: DE)
  Receive Date: 20140310
  Receipt Date: 20140310
  Transmission Date: 20141002
  Serious: Yes (Hospitalization)
  Sender: FDA-Public Use
  Company Number: DE-MYLANLABS-2014S1004470

PATIENT
  Sex: Female
  Weight: 60 kg

DRUGS (2)
  1. CITALOPRAM [Suspect]
     Route: 048
  2. OPIPRAMOL [Suspect]
     Route: 048

REACTIONS (5)
  - Suicide attempt [Unknown]
  - Crying [Unknown]
  - Apathy [Unknown]
  - Tachycardia [Unknown]
  - Diastolic hypertension [Unknown]
